FAERS Safety Report 17500633 (Version 1)
Quarter: 2020Q1

REPORT INFORMATION
  Report Type: Spontaneous
  Country: GB (occurrence: GB)
  Receive Date: 20200305
  Receipt Date: 20200305
  Transmission Date: 20200409
  Serious: Yes (Hospitalization)
  Sender: FDA-Public Use
  Company Number: GB-ACCORD-174664

PATIENT
  Age: 70 Year
  Sex: Male

DRUGS (17)
  1. GLYCERYL TRINITRATE [Concomitant]
     Active Substance: NITROGLYCERIN
  2. LANSOPRAZOLE. [Suspect]
     Active Substance: LANSOPRAZOLE
     Indication: PRODUCT USED FOR UNKNOWN INDICATION
     Dosage: GR, OM
  3. MONOMIL XL [Concomitant]
     Active Substance: ISOSORBIDE MONONITRATE
     Dosage: OM
  4. COLECALCIFEROL [Concomitant]
     Active Substance: CHOLECALCIFEROL
  5. PERINDOPRIL/PERINDOPRIL ERBUMINE [Suspect]
     Active Substance: PERINDOPRIL ERBUMINE
     Indication: PRODUCT USED FOR UNKNOWN INDICATION
     Dosage: OM
  6. NOVOMIX [Concomitant]
     Active Substance: INSULIN ASPART
     Dosage: 100UNITS/ML, 16 UNITS OM 14 UNITS EVENING MEAL
  7. SPIRIVA [Concomitant]
     Active Substance: TIOTROPIUM BROMIDE MONOHYDRATE
     Dosage: CAPSULE
     Route: 055
  8. ROSUVASTATIN/ROSUVASTATIN CALCIUM [Concomitant]
     Active Substance: ROSUVASTATIN CALCIUM
     Dosage: ON
  9. METFORMIN [Concomitant]
     Active Substance: METFORMIN HYDROCHLORIDE
  10. SERETIDE [Concomitant]
     Active Substance: FLUTICASONE PROPIONATE\SALMETEROL XINAFOATE
     Dosage: PUFFS, 250, VIA SPACER
  11. FULTIUM-D3 [Concomitant]
     Active Substance: CHOLECALCIFEROL
     Dosage: OM
  12. VENTOLIN [Concomitant]
     Active Substance: ALBUTEROL SULFATE
     Dosage: QDS, VIA SPACER
  13. PRED FORT [Concomitant]
     Active Substance: PREDNISOLONE ACETATE
     Dosage: RIGHT EYE OM
  14. AMITRIPTYLINE [Suspect]
     Active Substance: AMITRIPTYLINE
     Indication: PRODUCT USED FOR UNKNOWN INDICATION
     Dosage: ON
  15. CODEINE PHOSPHATE/PARACETAMOL [Concomitant]
     Active Substance: ACETAMINOPHEN\CODEINE PHOSPHATE
     Dosage: 8MG/500MG, ONE OR TWO TO BE TAKEN FOUR TIMES A DAY
     Dates: start: 20190807
  16. CARBOCISTEINE [Concomitant]
     Active Substance: CARBOCYSTEINE
  17. ACETYLSALICYLIC ACID [Concomitant]
     Active Substance: ASPIRIN
     Dosage: OM

REACTIONS (1)
  - Hyponatraemia [Recovering/Resolving]
